FAERS Safety Report 18242707 (Version 3)
Quarter: 2020Q4

REPORT INFORMATION
  Report Type: Spontaneous
  Country: CN (occurrence: CN)
  Receive Date: 20200908
  Receipt Date: 20201014
  Transmission Date: 20210113
  Serious: Yes (Death, Hospitalization, Other)
  Sender: FDA-Public Use
  Company Number: CN-ASTRAZENECA-2020SF13843

PATIENT
  Age: 57 Year
  Sex: Female

DRUGS (2)
  1. LYNPARZA [Suspect]
     Active Substance: OLAPARIB
     Indication: OVARIAN CANCER
     Route: 048
     Dates: start: 20200814
  2. LYNPARZA [Suspect]
     Active Substance: OLAPARIB
     Indication: OVARIAN CANCER
     Route: 048
     Dates: end: 20200822

REACTIONS (12)
  - Death [Fatal]
  - White blood cell count decreased [Recovering/Resolving]
  - Myelosuppression [Not Recovered/Not Resolved]
  - Anaemia [Unknown]
  - Platelet count decreased [Not Recovered/Not Resolved]
  - Herpes virus infection [Unknown]
  - Neutrophil count decreased [Unknown]
  - Red blood cell count decreased [Unknown]
  - Blister [Recovering/Resolving]
  - Asthma [Recovering/Resolving]
  - Electrolyte imbalance [Unknown]
  - Renal failure [Recovering/Resolving]

NARRATIVE: CASE EVENT DATE: 2020
